FAERS Safety Report 13044149 (Version 1)
Quarter: 2016Q4

REPORT INFORMATION
  Report Type: Spontaneous
  Country: GB (occurrence: GB)
  Receive Date: 20161220
  Receipt Date: 20161220
  Transmission Date: 20170207
  Serious: Yes (Hospitalization)
  Sender: FDA-Public Use
  Company Number: GB-ASTRAZENECA-2016SF31425

PATIENT
  Age: 62 Year
  Sex: Male

DRUGS (12)
  1. QUININE [Concomitant]
     Active Substance: QUININE
     Route: 048
  2. SERETIDE [Concomitant]
     Active Substance: FLUTICASONE PROPIONATE\SALMETEROL XINAFOATE
     Route: 055
  3. SALBUTAMOL [Concomitant]
     Active Substance: ALBUTEROL
     Dosage: 100.0UG UNKNOWN
     Route: 055
  4. VITAMIN B SUBSTANCES [Concomitant]
     Route: 048
  5. SERTRALINE [Suspect]
     Active Substance: SERTRALINE HYDROCHLORIDE
     Route: 048
  6. OMEPRAZOLE. [Suspect]
     Active Substance: OMEPRAZOLE
     Route: 048
  7. FUROSEMIDE. [Suspect]
     Active Substance: FUROSEMIDE
     Dosage: 80MG MORNING AND 40MG LUNCH
     Route: 048
  8. BACLOFEN. [Concomitant]
     Active Substance: BACLOFEN
     Route: 048
  9. ISOSORBIDE MONONITRATE. [Concomitant]
     Active Substance: ISOSORBIDE MONONITRATE
     Route: 048
  10. THIAMINE. [Concomitant]
     Active Substance: THIAMINE
     Route: 048
  11. SPIRONOLACTONE. [Suspect]
     Active Substance: SPIRONOLACTONE
     Dosage: 200MG MORNING AND 100MG LUNCH
     Route: 048
  12. TIOTROPIUM [Concomitant]
     Active Substance: TIOTROPIUM
     Route: 055

REACTIONS (3)
  - Hyponatraemia [Recovering/Resolving]
  - Acute kidney injury [Recovered/Resolved]
  - Confusional state [Unknown]
